FAERS Safety Report 6445685-3 (Version None)
Quarter: 2009Q4

REPORT INFORMATION
  Report Type: 
  Country: None (occurrence: None)
  Receive Date: 20091118
  Receipt Date: 20091118
  Transmission Date: 20100525
  Serious: Yes (Life-Threatening, Hospitalization)
  Sender: FDA-Public Use
  Company Number: None

PATIENT
  Age: 21 Year
  Sex: Female
  Weight: 63.5036 kg

DRUGS (2)
  1. CYMBALTA [Suspect]
     Indication: ANXIETY
     Dosage: LOW DOSE 1X DAILY PO
     Route: 048
     Dates: start: 20080901, end: 20090117
  2. CYMBALTA [Suspect]
     Indication: DEPRESSION
     Dosage: LOW DOSE 1X DAILY PO
     Route: 048
     Dates: start: 20080901, end: 20090117

REACTIONS (2)
  - OVERDOSE [None]
  - SUICIDE ATTEMPT [None]
